FAERS Safety Report 20778931 (Version 1)
Quarter: 2022Q2

REPORT INFORMATION
  Report Type: Report from Study
  Country: MX (occurrence: MX)
  Receive Date: 20220503
  Receipt Date: 20220503
  Transmission Date: 20220721
  Serious: Yes (Hospitalization, Other)
  Sender: FDA-Public Use
  Company Number: MX-NOVARTISPH-NVSC2022MX056056

PATIENT
  Sex: Male
  Weight: 87 kg

DRUGS (1)
  1. EXFORGE [Suspect]
     Active Substance: AMLODIPINE BESYLATE\VALSARTAN
     Indication: Hypertension
     Dosage: 1 DOSAGE FORM, QD (APPROXIMATELY 8 YEARS AGO)
     Route: 048

REACTIONS (4)
  - Pancreatic disorder [Recovered/Resolved]
  - Prostatitis [Not Recovered/Not Resolved]
  - Blood pressure abnormal [Unknown]
  - Visual impairment [Recovered/Resolved]
